FAERS Safety Report 24422223 (Version 1)
Quarter: 2024Q4

REPORT INFORMATION
  Report Type: Spontaneous
  Country: US (occurrence: US)
  Receive Date: 20241010
  Receipt Date: 20241010
  Transmission Date: 20250114
  Serious: Yes (Hospitalization)
  Sender: MYLAN
  Company Number: US-MYLANLABS-2024M1090643

PATIENT
  Age: 29 Year
  Sex: Female

DRUGS (3)
  1. ATOVAQUONE\PROGUANIL [Suspect]
     Active Substance: ATOVAQUONE\PROGUANIL
     Indication: Malaria
     Dosage: UNK
     Route: 048
  2. TYLENOL [Concomitant]
     Active Substance: ACETAMINOPHEN
     Indication: Malaria
     Dosage: UNK
     Route: 065
  3. LORAZEPAM [Concomitant]
     Active Substance: LORAZEPAM
     Indication: Generalised anxiety disorder
     Dosage: UNK
     Route: 065

REACTIONS (1)
  - Drug ineffective [Unknown]
